FAERS Safety Report 13124350 (Version 1)
Quarter: 2017Q1

REPORT INFORMATION
  Report Type: Report from Study
  Country: JP (occurrence: JP)
  Receive Date: 20170118
  Receipt Date: 20170118
  Transmission Date: 20170428
  Serious: Yes (Life-Threatening, Other)
  Sender: FDA-Public Use
  Company Number: JP-ACCORD-047388

PATIENT
  Age: 35 Year
  Sex: Female

DRUGS (4)
  1. FOLINIC ACID [Suspect]
     Active Substance: LEUCOVORIN
     Indication: ADENOCARCINOMA GASTRIC
     Dosage: TOTAL OF 12 CYCLES OF MFOLFOX6 AND TWO CYCLES OF SIMPLIFIED LEUCOVORIN PLUS 5-FU WERE ADMINISTERED
  2. ZOLEDRONIC ACID [Concomitant]
     Active Substance: ZOLEDRONIC ACID
  3. FLUOROURACIL. [Suspect]
     Active Substance: FLUOROURACIL
     Indication: ADENOCARCINOMA GASTRIC
     Dosage: TOTAL OF 12 CYCLES OF MFOLFOX6 AND TWO CYCLES OF SIMPLIFIED LEUCOVORIN PLUS 5-FU WERE ADMINISTERED
  4. OXALIPLATIN. [Suspect]
     Active Substance: OXALIPLATIN
     Indication: ADENOCARCINOMA GASTRIC
     Dosage: TOTAL OF 12 CYCLES OF MFOLFOX6

REACTIONS (3)
  - Neutropenia [Unknown]
  - Device related infection [Unknown]
  - Treatment failure [Unknown]
